FAERS Safety Report 4930833-4 (Version None)
Quarter: 2006Q1

REPORT INFORMATION
  Report Type: 
  Country: None (occurrence: None)
  Receive Date: 20060227
  Receipt Date: 20060216
  Transmission Date: 20060701
  Serious: Yes (Disabling, Other)
  Sender: FDA-Public Use
  Company Number: 200610686GDS

PATIENT
  Age: 66 Year
  Sex: Male
  Weight: 83 kg

DRUGS (2)
  1. CIPROFLOXACIN [Suspect]
     Indication: SINUSITIS
     Dosage: 500 MG, TOTAL DAILY, ORAL
     Route: 048
     Dates: start: 20050101
  2. KARVEA [Concomitant]

REACTIONS (3)
  - CANDIDIASIS [None]
  - NECROSIS [None]
  - TENDON DISORDER [None]
